FAERS Safety Report 6656315-X (Version None)
Quarter: 2010Q1

REPORT INFORMATION
  Report Type: 
  Country: None (occurrence: None)
  Receive Date: 20100329
  Receipt Date: 20100323
  Transmission Date: 20100710
  Serious: Yes (Hospitalization)
  Sender: FDA-Public Use
  Company Number: FR-BRISTOL-MYERS SQUIBB COMPANY-14969513

PATIENT
  Age: 50 Year
  Sex: Female

DRUGS (8)
  1. REYATAZ [Suspect]
     Dosage: RESUMED IN DECEMBER-2009
     Route: 048
     Dates: start: 20070301, end: 20100222
  2. IBUPROFEN [Suspect]
     Indication: MUSCULOSKELETAL PAIN
     Dates: end: 20090301
  3. TRUVADA [Suspect]
     Dosage: INTERRUPTED ON 8FEB10 AND RESTARTED AT ONE TABLET/D ON 22FEB10
     Dates: start: 20070301
  4. PRAVASTATINE BIOGARAN [Suspect]
     Indication: HYPERCHOLESTEROLAEMIA
     Dosage: ALSO  ON MID JAN2010
     Dates: start: 20080101, end: 20091201
  5. ZERIT [Concomitant]
     Dates: end: 20070301
  6. EPIVIR [Concomitant]
     Dates: end: 20070301
  7. CRIXIVAN [Concomitant]
     Dates: end: 20070301
  8. ELISOR [Concomitant]

REACTIONS (3)
  - CYTOLYTIC HEPATITIS [None]
  - HEPATIC CIRRHOSIS [None]
  - HEPATITIS CHRONIC ACTIVE [None]
